FAERS Safety Report 11716276 (Version 1)
Quarter: 2015Q4

REPORT INFORMATION
  Report Type: Spontaneous
  Country: JP (occurrence: JP)
  Receive Date: 20151109
  Receipt Date: 20151109
  Transmission Date: 20160304
  Serious: Yes (Hospitalization)
  Sender: FDA-Public Use
  Company Number: US-ASTRAZENECA-2015SF08057

PATIENT
  Age: 16 Year
  Sex: Female

DRUGS (2)
  1. LOXOPROFEN SODIUM [Suspect]
     Active Substance: LOXOPROFEN SODIUM
     Indication: HEADACHE
     Dosage: UNK
     Route: 048
  2. BLOPRESS [Suspect]
     Active Substance: CANDESARTAN CILEXETIL
     Indication: IGA NEPHROPATHY
     Dosage: UNK
     Route: 048

REACTIONS (1)
  - Tubulointerstitial nephritis [Recovering/Resolving]
